FAERS Safety Report 7786672-2 (Version None)
Quarter: 2011Q3

REPORT INFORMATION
  Report Type: 
  Country: None (occurrence: None)
  Receive Date: 20110929
  Receipt Date: 20101202
  Transmission Date: 20111222
  Serious: Yes (Hospitalization, Other)
  Sender: FDA-Public Use
  Company Number: SE-UCBSA-023062

PATIENT
  Sex: Male

DRUGS (4)
  1. METHOTREXATE [Concomitant]
     Dosage: 20, 20 MG
     Dates: start: 20100128
  2. NSAID COX 1 [Concomitant]
     Dates: start: 20100101
  3. CIMZIA [Suspect]
     Indication: RHEUMATOID ARTHRITIS
     Dosage: 200, 200 MG
     Route: 058
     Dates: start: 20100512, end: 20100826
  4. PREDNISOLONE [Concomitant]
     Dosage: 15, 15 MG
     Dates: start: 20100128

REACTIONS (1)
  - LUNG ADENOCARCINOMA [None]
